FAERS Safety Report 21171385 (Version 1)
Quarter: 2022Q3

REPORT INFORMATION
  Report Type: Spontaneous
  Country: FR (occurrence: FR)
  Receive Date: 20220804
  Receipt Date: 20220804
  Transmission Date: 20221026
  Serious: Yes (Hospitalization)
  Sender: FDA-Public Use
  Company Number: None

PATIENT
  Age: 87 Year
  Sex: Male
  Weight: 78 kg

DRUGS (4)
  1. AMOXICILLIN [Suspect]
     Active Substance: AMOXICILLIN
     Indication: Helicobacter gastritis
     Dosage: 2 GRAM DAILY; MORNING AND EVENING
     Route: 065
     Dates: start: 20200505, end: 20200519
  2. CLARITHROMYCIN [Suspect]
     Active Substance: CLARITHROMYCIN
     Indication: Helicobacter gastritis
     Dosage: 1000 MILLIGRAM DAILY; MORNING AND EVENING
     Route: 065
     Dates: start: 20200505, end: 20200519
  3. ESOMEPRAZOLE [Suspect]
     Active Substance: ESOMEPRAZOLE
     Indication: Helicobacter gastritis
     Dosage: 80 MILLIGRAM DAILY; MORNING AND EVENING
     Route: 065
     Dates: start: 20200505, end: 20200519
  4. METRONIDAZOLE [Suspect]
     Active Substance: METRONIDAZOLE
     Indication: Helicobacter gastritis
     Dosage: 1000 MILLIGRAM DAILY; MORNING AND EVENING
     Route: 065
     Dates: start: 20200505, end: 20200519

REACTIONS (1)
  - Tubulointerstitial nephritis [Recovered/Resolved with Sequelae]

NARRATIVE: CASE EVENT DATE: 20200601
